FAERS Safety Report 7643121-2 (Version None)
Quarter: 2011Q3

REPORT INFORMATION
  Report Type: 
  Country: None (occurrence: None)
  Receive Date: 20110729
  Receipt Date: 20110720
  Transmission Date: 20111222
  Serious: Yes (Other)
  Sender: FDA-Public Use
  Company Number: US-ASTRAZENECA-2007UW24434

PATIENT
  Age: 16517 Day
  Sex: Female
  Weight: 104.3 kg

DRUGS (10)
  1. TEGRETOL [Concomitant]
     Dosage: DOSE 800 MG DAILY
     Dates: start: 20050228
  2. PAXIL [Concomitant]
     Dates: start: 20010128
  3. TRAZODONE HCL [Concomitant]
     Dosage: DOSE 50 MG - 100 MG AS REQUIRED
     Dates: start: 20010128
  4. EFFEXOR XR [Concomitant]
     Route: 048
     Dates: start: 20000101
  5. CHROMIUM PICOLINATE [Concomitant]
     Route: 048
  6. TEGRETOL [Concomitant]
     Route: 048
     Dates: start: 20010101
  7. NEURONTIN [Concomitant]
     Dates: start: 20050228
  8. SEROQUEL [Suspect]
     Indication: ANXIETY
     Dosage: 25 MG, 50 MG, 100 MG
     Route: 048
     Dates: start: 20031001
  9. SEROQUEL [Suspect]
     Dosage: 25 MG - 200 MG
     Route: 048
     Dates: start: 20050228
  10. EFFEXOR XR [Concomitant]
     Route: 048
     Dates: start: 20050228

REACTIONS (6)
  - TYPE 1 DIABETES MELLITUS [None]
  - BLOOD CHOLESTEROL INCREASED [None]
  - NEUROPATHY PERIPHERAL [None]
  - DIABETIC NEUROPATHY [None]
  - DIABETIC EYE DISEASE [None]
  - DIABETES MELLITUS [None]
